FAERS Safety Report 25473173 (Version 4)
Quarter: 2025Q3

REPORT INFORMATION
  Report Type: Spontaneous
  Country: TR (occurrence: TR)
  Receive Date: 20250624
  Receipt Date: 20250723
  Transmission Date: 20251020
  Serious: Yes (Hospitalization, Other)
  Sender: UCB
  Company Number: None

PATIENT
  Age: 35 Year
  Sex: Female
  Weight: 47 kg

DRUGS (4)
  1. BIMZELX [Suspect]
     Active Substance: BIMEKIZUMAB-BKZX
     Indication: Psoriasis
     Dosage: 320 MILLIGRAM, EV 4 WEEKS
     Route: 030
     Dates: start: 20250117, end: 20250117
  2. BIMZELX [Suspect]
     Active Substance: BIMEKIZUMAB-BKZX
     Dosage: 320 MILLIGRAM, EV 4 WEEKS
     Route: 030
     Dates: start: 20250222
  3. TREMFYA [Concomitant]
     Active Substance: GUSELKUMAB
     Indication: Vasodilatation
  4. TREMFYA [Concomitant]
     Active Substance: GUSELKUMAB
     Indication: Pericarditis

REACTIONS (10)
  - Tonsillitis [Recovered/Resolved with Sequelae]
  - Xerophthalmia [Not Recovered/Not Resolved]
  - Lower respiratory tract infection [Recovered/Resolved]
  - Upper respiratory tract infection [Recovered/Resolved]
  - Gastroenteritis [Not Recovered/Not Resolved]
  - Hyperhidrosis [Not Recovered/Not Resolved]
  - Alopecia [Unknown]
  - Depression [Unknown]
  - Cough [Not Recovered/Not Resolved]
  - Product administered at inappropriate site [Unknown]

NARRATIVE: CASE EVENT DATE: 20250101
